FAERS Safety Report 16960501 (Version 2)
Quarter: 2019Q4

REPORT INFORMATION
  Report Type: Report from Study
  Country: None (occurrence: TR)
  Receive Date: 20191025
  Receipt Date: 20191111
  Transmission Date: 20200122
  Serious: Yes (Hospitalization)
  Sender: FDA-Public Use
  Company Number: TR-ABBVIE-19K-161-2970055-00

PATIENT
  Sex: Male
  Weight: 80 kg

DRUGS (1)
  1. LEVODOPA/CARBIDOPA [Suspect]
     Active Substance: CARBIDOPA\LEVODOPA
     Indication: PARKINSON^S DISEASE
     Dosage: MORNING DOSE(ML): 4.30CONTINUES DOSE(ML):2.80 EXTRA DOSE(ML):1.50
     Route: 050
     Dates: start: 20151020

REACTIONS (3)
  - C-reactive protein increased [Recovering/Resolving]
  - Musculoskeletal pain [Recovered/Resolved]
  - Stoma site discharge [Not Recovered/Not Resolved]
